FAERS Safety Report 8160124-2 (Version None)
Quarter: 2012Q1

REPORT INFORMATION
  Report Type: 
  Country: None (occurrence: None)
  Receive Date: 20120223
  Receipt Date: 20120216
  Transmission Date: 20120608
  Serious: Yes (Hospitalization)
  Sender: FDA-Public Use
  Company Number: IE-MEDIMMUNE-MEDI-0014428

PATIENT
  Sex: Male

DRUGS (3)
  1. FUROSEMIDE [Concomitant]
  2. SYNAGIS [Suspect]
     Route: 030
     Dates: start: 20120106, end: 20120106
  3. SYNAGIS [Suspect]
     Route: 030
     Dates: start: 20111020, end: 20111020

REACTIONS (3)
  - DIARRHOEA [None]
  - ABDOMINAL PAIN UPPER [None]
  - VOMITING [None]
